FAERS Safety Report 13835834 (Version 3)
Quarter: 2022Q3

REPORT INFORMATION
  Report Type: Spontaneous
  Country: FR (occurrence: FR)
  Receive Date: 20170804
  Receipt Date: 20220712
  Transmission Date: 20221026
  Serious: Yes (Life-Threatening, Hospitalization)
  Sender: FDA-Public Use
  Company Number: FR-JNJFOC-20170803608

PATIENT
  Age: 49 Year
  Sex: Male
  Weight: 150 kg

DRUGS (3)
  1. RIVAROXABAN [Suspect]
     Active Substance: RIVAROXABAN
     Indication: Atrial fibrillation
     Dosage: 14 X 20 MG (280 MG), ONCE
     Route: 048
  2. AMIODARONE [Suspect]
     Active Substance: AMIODARONE
     Dosage: 6 G, ONCE
  3. PROPRANOLOL HYDROCHLORIDE [Suspect]
     Active Substance: PROPRANOLOL HYDROCHLORIDE
     Dosage: 1.2 G, ONCE

REACTIONS (5)
  - Hypovolaemic shock [Unknown]
  - Suicide attempt [Unknown]
  - Intentional product misuse [Unknown]
  - Intentional self-injury [Unknown]
  - Intentional overdose [Unknown]
